FAERS Safety Report 18204712 (Version 2)
Quarter: 2020Q3

REPORT INFORMATION
  Report Type: Spontaneous
  Country: US (occurrence: US)
  Receive Date: 20200827
  Receipt Date: 20200909
  Transmission Date: 20201103
  Serious: Yes (Hospitalization)
  Sender: FDA-Public Use
  Company Number: US-TEVA-2020-US-1817629

PATIENT
  Age: 64 Year
  Sex: Female

DRUGS (1)
  1. PROAIR HFA [Suspect]
     Active Substance: ALBUTEROL SULFATE
     Route: 065

REACTIONS (5)
  - Aortic aneurysm [Unknown]
  - Throat irritation [Unknown]
  - Product physical consistency issue [Unknown]
  - Cough [Unknown]
  - Device defective [Unknown]

NARRATIVE: CASE EVENT DATE: 202008
